FAERS Safety Report 17974234 (Version 1)
Quarter: 2020Q3

REPORT INFORMATION
  Report Type: Spontaneous
  Country: US (occurrence: US)
  Receive Date: 20200702
  Receipt Date: 20200702
  Transmission Date: 20201103
  Serious: Yes (Disabling, Other)
  Sender: FDA-Public Use
  Company Number: None

PATIENT
  Age: 74 Year
  Sex: Female
  Weight: 50.4 kg

DRUGS (5)
  1. PROLIA [Suspect]
     Active Substance: DENOSUMAB
     Indication: OSTEOPOROSIS
     Dosage: ?          OTHER FREQUENCY:EVERY 6 MONTHS INJ;OTHER ROUTE:INJECTION?
     Dates: start: 20171228, end: 20200611
  2. AMOXICILLIN. [Concomitant]
     Active Substance: AMOXICILLIN
  3. VITAMIN C [Concomitant]
     Active Substance: ASCORBIC ACID
  4. CALCIUM WITH D [Concomitant]
     Active Substance: CALCIUM\VITAMIN D
  5. BIOTIN [Concomitant]
     Active Substance: BIOTIN

REACTIONS (1)
  - Bone disorder [None]

NARRATIVE: CASE EVENT DATE: 20200611
